FAERS Safety Report 17010843 (Version 1)
Quarter: 2019Q4

REPORT INFORMATION
  Report Type: Spontaneous
  Country: US (occurrence: US)
  Receive Date: 20191107
  Receipt Date: 20191107
  Transmission Date: 20200122
  Serious: Yes (Disabling)
  Sender: FDA-Public Use
  Company Number: None

PATIENT
  Age: 44 Year
  Sex: Female
  Weight: 56.25 kg

DRUGS (8)
  1. CLONAZEPAM. [Concomitant]
     Active Substance: CLONAZEPAM
  2. POLYPHENOLS [Concomitant]
  3. TUMERIC [Concomitant]
     Active Substance: HERBALS\TURMERIC
  4. IMITREX [Concomitant]
     Active Substance: SUMATRIPTAN SUCCINATE
  5. PROBIOTIC [Concomitant]
     Active Substance: PROBIOTICS NOS
  6. TOPIRAMATE. [Concomitant]
     Active Substance: TOPIRAMATE
  7. AIMOVIG [Suspect]
     Active Substance: ERENUMAB-AOOE
     Indication: MIGRAINE
     Dosage: ONCE PER MONTH INJECTED INTO STOMACHE?
     Dates: start: 20190618, end: 20191021
  8. TRAZODONE [Concomitant]
     Active Substance: TRAZODONE HYDROCHLORIDE

REACTIONS (5)
  - Constipation [None]
  - Flatulence [None]
  - Abdominal distension [None]
  - Diarrhoea [None]
  - Anxiety [None]

NARRATIVE: CASE EVENT DATE: 20190819
